FAERS Safety Report 6768184-8 (Version None)
Quarter: 2010Q2

REPORT INFORMATION
  Report Type: 
  Country: None (occurrence: None)
  Receive Date: 20100610
  Receipt Date: 20100603
  Transmission Date: 20101027
  Serious: Yes (Hospitalization)
  Sender: FDA-Public Use
  Company Number: 100966

PATIENT
  Age: 21 Year
  Sex: Female

DRUGS (1)
  1. RIFAMPIN [Suspect]
     Indication: TUBERCULOSIS
     Dosage: 450MG/3 TIMES WEEKLY

REACTIONS (1)
  - SPLENIC ABSCESS [None]
